FAERS Safety Report 12539249 (Version 1)
Quarter: 2016Q3

REPORT INFORMATION
  Report Type: Spontaneous
  Country: US (occurrence: None)
  Receive Date: 20160707
  Receipt Date: 20160707
  Transmission Date: 20161109
  Serious: No
  Sender: FDA-Public Use
  Company Number: None

PATIENT
  Age: 85 Year
  Sex: Male

DRUGS (7)
  1. ZYTIGA [Suspect]
     Active Substance: ABIRATERONE ACETATE
     Indication: PROSTATE CANCER
     Dosage: 250MG 4 QD PO
     Route: 048
     Dates: start: 20160613
  2. ULTRAM D [Concomitant]
  3. FISH OIL [Concomitant]
     Active Substance: FISH OIL
  4. LUPRON [Concomitant]
     Active Substance: LEUPROLIDE ACETATE
  5. FLUTAMIDE. [Concomitant]
     Active Substance: FLUTAMIDE
  6. LASIX [Concomitant]
     Active Substance: FUROSEMIDE
  7. ALLOPURINOL. [Concomitant]
     Active Substance: ALLOPURINOL

REACTIONS (1)
  - Rash [None]

NARRATIVE: CASE EVENT DATE: 2016
